FAERS Safety Report 7994010-5 (Version None)
Quarter: 2011Q4

REPORT INFORMATION
  Report Type: 
  Country: None (occurrence: None)
  Receive Date: 20111220
  Receipt Date: 20111208
  Transmission Date: 20120403
  Serious: Yes (Hospitalization)
  Sender: FDA-Public Use
  Company Number: US-BAYER-2011-089739

PATIENT
  Age: 16 Year
  Sex: Female
  Weight: 49.887 kg

DRUGS (8)
  1. ACETAMINOPHEN [Concomitant]
     Indication: PAIN
     Route: 048
  2. IBUPROFEN [Concomitant]
     Indication: HEADACHE
     Route: 048
  3. TRAMADOL HCL [Concomitant]
     Dosage: 50 MG, PRN
  4. YAZ [Suspect]
     Indication: CONTRACEPTION
     Dosage: UNK
     Dates: start: 20070901, end: 20100201
  5. YAZ [Suspect]
     Indication: ACNE
     Dosage: UNK
     Dates: start: 20070101, end: 20100101
  6. PREVACID [Concomitant]
     Dosage: UNK UNK, PRN
     Route: 048
  7. YAZ [Suspect]
     Indication: PREMENSTRUAL SYNDROME
  8. YAZ [Suspect]

REACTIONS (5)
  - MENTAL DISORDER [None]
  - CHOLECYSTITIS CHRONIC [None]
  - OVARIAN CYST [None]
  - GALLBLADDER DISORDER [None]
  - INJURY [None]
